FAERS Safety Report 4352934-4 (Version None)
Quarter: 2004Q2

REPORT INFORMATION
  Report Type: 
  Country: None (occurrence: None)
  Receive Date: 20040429
  Receipt Date: 20040422
  Transmission Date: 20050107
  Serious: Yes (Death)
  Sender: FDA-Public Use
  Company Number: 04P-087-0251179-00

PATIENT
  Age: 64 Year
  Sex: Male
  Weight: 43 kg

DRUGS (11)
  1. MAVIK [Suspect]
     Indication: HYPERTENSION
     Dosage: 1 MG, 1 IN 1 D, PER ORAL
     Route: 048
     Dates: start: 20010119, end: 20020215
  2. CLIVARINE (REVIPARIN) [Suspect]
     Indication: HAEMODIALYSIS
     Dosage: 2400 IU, 1 IN 1 D, INTRAVENOUS
     Route: 042
     Dates: start: 20010625, end: 20020215
  3. VALSARTAN [Suspect]
     Indication: HYPERTENSION
     Dosage: 40 MG, 1 IN 1 D, PER ORAL
     Route: 048
     Dates: start: 20010219, end: 20020215
  4. AMLODIPINE BESYLATE [Suspect]
     Indication: HYPERTENSION
     Dosage: 5 MG, 1 IN 1 D, PER ORAL
     Route: 048
     Dates: start: 20010219, end: 20020215
  5. ASPIRIN [Concomitant]
  6. EPOETIN BETA [Concomitant]
  7. ISOSORBIDE DINITRATE [Concomitant]
  8. PRECIPITATED CALCIUM CARBONATE [Concomitant]
  9. AZULENE SULFONATE SODIUM / L-GLUTAMINE [Concomitant]
  10. TEPRENONE [Concomitant]
  11. CETRAXATE HYDROCHLORIDE [Concomitant]

REACTIONS (2)
  - CEREBRAL HAEMORRHAGE [None]
  - TREATMENT NONCOMPLIANCE [None]
